FAERS Safety Report 12807386 (Version 2)
Quarter: 2017Q1

REPORT INFORMATION
  Report Type: Spontaneous
  Country: US (occurrence: US)
  Receive Date: 20161004
  Receipt Date: 20170216
  Transmission Date: 20170428
  Serious: Yes (Hospitalization, Other)
  Sender: FDA-Public Use
  Company Number: US-JNJFOC-20160929806

PATIENT
  Age: 62 Year
  Sex: Female

DRUGS (11)
  1. PIOGLITAZONE. [Concomitant]
     Active Substance: PIOGLITAZONE
     Route: 065
  2. EXENATIDE [Concomitant]
     Active Substance: EXENATIDE
     Route: 065
  3. LISINOPRIL. [Concomitant]
     Active Substance: LISINOPRIL
     Route: 065
  4. RANITIDINE. [Concomitant]
     Active Substance: RANITIDINE
     Route: 065
  5. ALPRAZOLAM. [Concomitant]
     Active Substance: ALPRAZOLAM
     Route: 065
  6. CANAGLIFLOZIN [Suspect]
     Active Substance: CANAGLIFLOZIN
     Indication: TYPE 2 DIABETES MELLITUS
     Route: 065
  7. METFORMIN [Concomitant]
     Active Substance: METFORMIN HYDROCHLORIDE
     Route: 065
  8. FLUOXETINE [Concomitant]
     Active Substance: FLUOXETINE HYDROCHLORIDE
     Route: 065
  9. ATORVASTATIN [Concomitant]
     Active Substance: ATORVASTATIN
     Route: 065
  10. SUCRALFATE. [Concomitant]
     Active Substance: SUCRALFATE
     Route: 065
  11. OMEPRAZOLE. [Concomitant]
     Active Substance: OMEPRAZOLE
     Route: 065

REACTIONS (1)
  - Diabetic ketoacidosis [Recovered/Resolved]
